FAERS Safety Report 20900188 (Version 4)
Quarter: 2022Q3

REPORT INFORMATION
  Report Type: Spontaneous
  Country: FR (occurrence: FR)
  Receive Date: 20220601
  Receipt Date: 20220710
  Transmission Date: 20221026
  Serious: Yes (Hospitalization, Other)
  Sender: FDA-Public Use
  Company Number: FR-SA-SAC20220527001598

PATIENT
  Age: 67 Year
  Sex: Female

DRUGS (7)
  1. DUPILUMAB [Suspect]
     Active Substance: DUPILUMAB
     Indication: Nasal polyps
     Dosage: 300 MG
     Route: 065
     Dates: start: 202203
  2. DUPILUMAB [Suspect]
     Active Substance: DUPILUMAB
     Indication: Asthma
  3. DUPILUMAB [Suspect]
     Active Substance: DUPILUMAB
     Indication: Urticaria cholinergic
  4. TIAPROFENIC ACID [Suspect]
     Active Substance: TIAPROFENIC ACID
     Dosage: UNK
     Route: 065
  5. SERETIDE [Concomitant]
     Active Substance: FLUTICASONE PROPIONATE\SALMETEROL XINAFOATE
     Indication: Nausea
     Dosage: 50 MG, BID
  6. COVID-19 VACCINE [Concomitant]
     Indication: COVID-19 immunisation
     Dosage: UNK
  7. INNOVAIR [Concomitant]
     Active Substance: BECLOMETHASONE DIPROPIONATE\FORMOTEROL
     Dosage: UNK

REACTIONS (14)
  - Immunisation reaction [Unknown]
  - Fatigue [Unknown]
  - Haemorrhage [Unknown]
  - Syncope [Recovered/Resolved]
  - Nasal dryness [Unknown]
  - Joint stiffness [Unknown]
  - Sitting disability [Unknown]
  - Dysstasia [Unknown]
  - Asthma [Unknown]
  - Nausea [Unknown]
  - Arthralgia [Unknown]
  - Contraindicated product administered [Unknown]
  - Product prescribing issue [Unknown]
  - Product use in unapproved indication [Unknown]

NARRATIVE: CASE EVENT DATE: 20220101
